FAERS Safety Report 10125759 (Version 2)
Quarter: 2014Q2

REPORT INFORMATION
  Report Type: Spontaneous
  Country: GB (occurrence: GB)
  Receive Date: 20140425
  Receipt Date: 20140512
  Transmission Date: 20141212
  Serious: Yes (Other)
  Sender: FDA-Public Use
  Company Number: GB-WATSON-2014-08174

PATIENT
  Age: 53 Year
  Sex: Male
  Weight: 133 kg

DRUGS (6)
  1. RAMIPRIL (UNKNOWN) [Suspect]
     Indication: MICROALBUMINURIA
     Dosage: 10 MG, UNKNOWN; INITIALLY 1.25 MG TITRATED UP TO 10 MG
     Route: 048
     Dates: start: 20140217, end: 20140310
  2. RAMIPRIL (UNKNOWN) [Interacting]
     Dosage: 1.25 MG, UNKNOWN; INITIALLY 1.25 MG TITRATED UP TO 10 MG
     Route: 048
     Dates: start: 20131007, end: 20140216
  3. DAPAGLIFLOZIN [Interacting]
     Indication: TYPE 2 DIABETES MELLITUS
     Dosage: 10 MG, UNKNOWN
     Route: 048
     Dates: start: 20130828
  4. CIALIS [Concomitant]
     Indication: PRODUCT USED FOR UNKNOWN INDICATION
     Dosage: UNKNOWN
     Route: 065
  5. DULOXETINE [Concomitant]
     Indication: PRODUCT USED FOR UNKNOWN INDICATION
     Dosage: THE PATIENT WAS NOT TAKING DULOXETINE ON THE DAYS HE WAS WORKING.
     Route: 065
  6. LOPERAMIDE [Concomitant]
     Indication: PRODUCT USED FOR UNKNOWN INDICATION
     Dosage: UNKNOWN
     Route: 065

REACTIONS (3)
  - Loss of consciousness [Recovered/Resolved]
  - Hypotension [Recovered/Resolved]
  - Drug interaction [Unknown]
